FAERS Safety Report 10049422 (Version 1)
Quarter: 2014Q2

REPORT INFORMATION
  Report Type: Spontaneous
  Country: CA (occurrence: CA)
  Receive Date: 20140401
  Receipt Date: 20140401
  Transmission Date: 20141212
  Serious: Yes (Hospitalization)
  Sender: FDA-Public Use
  Company Number: CA-JNJFOC-20140316171

PATIENT
  Age: 70 Year
  Sex: Male
  Weight: 81 kg

DRUGS (4)
  1. XARELTO [Suspect]
     Indication: PRODUCT USED FOR UNKNOWN INDICATION
     Route: 048
  2. PANTOPRAZOLE [Concomitant]
     Route: 065
  3. AMIODARON [Concomitant]
     Route: 065
  4. BISOPROLOL [Concomitant]
     Route: 065

REACTIONS (3)
  - Colonoscopy [Unknown]
  - Polypectomy [Unknown]
  - Gastrointestinal haemorrhage [Unknown]
